FAERS Safety Report 6635261-1 (Version None)
Quarter: 2010Q1

REPORT INFORMATION
  Report Type: 
  Country: None (occurrence: None)
  Receive Date: 20100315
  Receipt Date: 20100219
  Transmission Date: 20100710
  Serious: Yes (Other)
  Sender: FDA-Public Use
  Company Number: AU-B.I. PHARMACEUTICALS,INC./RIDGEFIELD-2010-BP-01834YA

PATIENT
  Sex: Male

DRUGS (5)
  1. TAMSULOSIN HCL [Suspect]
     Indication: DRUG USE FOR UNKNOWN INDICATION
     Dates: start: 20100115, end: 20100201
  2. ATACAND [Concomitant]
     Indication: CARDIOMYOPATHY
     Dosage: 8 MG
  3. WARFARIN SODIUM [Concomitant]
     Indication: ATRIAL FIBRILLATION
     Dosage: 6 MG
  4. LANOXIN [Concomitant]
     Indication: ATRIAL FIBRILLATION
     Dosage: 375 MCG
  5. PREDNISOLONE [Concomitant]
     Dosage: 10 MG

REACTIONS (3)
  - DIZZINESS [None]
  - NEOPLASM MALIGNANT [None]
  - OEDEMA PERIPHERAL [None]
